FAERS Safety Report 15050263 (Version 2)
Quarter: 2018Q3

REPORT INFORMATION
  Report Type: Spontaneous
  Country: US (occurrence: US)
  Receive Date: 20180622
  Receipt Date: 20180726
  Transmission Date: 20181010
  Serious: Yes (Other)
  Sender: FDA-Public Use
  Company Number: US-SA-2018SA001621

PATIENT
  Age: 56 Year
  Sex: Female
  Weight: 68.03 kg

DRUGS (6)
  1. HYDROCHLOROTHIAZIDE. [Concomitant]
     Active Substance: HYDROCHLOROTHIAZIDE
  2. TAXOTERE [Suspect]
     Active Substance: DOCETAXEL
     Dosage: 174 MG,Q3W
     Route: 051
     Dates: start: 20120208, end: 20120208
  3. DOCUSATE [Concomitant]
     Active Substance: DOCUSATE
  4. TAXOTERE [Suspect]
     Active Substance: DOCETAXEL
     Indication: BREAST CANCER
     Dosage: 174 MG,Q3W
     Route: 051
     Dates: start: 20111130, end: 20111130
  5. DOXORUBICIN [Concomitant]
     Active Substance: DOXORUBICIN
  6. AMLODIPINE [Concomitant]
     Active Substance: AMLODIPINE BESYLATE

REACTIONS (2)
  - Alopecia [Recovering/Resolving]
  - Psychological trauma [Unknown]
